FAERS Safety Report 24213749 (Version 3)
Quarter: 2025Q1

REPORT INFORMATION
  Report Type: Report from Study
  Country: US (occurrence: US)
  Receive Date: 20240815
  Receipt Date: 20250204
  Transmission Date: 20250409
  Serious: Yes (Other)
  Sender: ROCHE
  Company Number: US-ROCHE-3339488

PATIENT
  Age: 70 Year
  Sex: Female
  Weight: 74.84 kg

DRUGS (8)
  1. RITUXAN [Suspect]
     Active Substance: RITUXIMAB
     Indication: Congenital anomaly
     Dosage: MORE DOSAGE INFORMATION IS: 1 INFUSION 2 WEEKS APART TO REPEAT EVERY 4 MONTH.
     Route: 040
  2. RITUXAN [Suspect]
     Active Substance: RITUXIMAB
     Indication: Vasculitis necrotising
  3. RITUXAN [Suspect]
     Active Substance: RITUXIMAB
     Indication: Systemic lupus erythematosus
  4. ELIQUIS [Concomitant]
     Active Substance: APIXABAN
     Indication: Atrial fibrillation
     Dosage: MORE DOSAGE INFORMATION: TABLETS COME AS 25 MG TABLETS - PATIENT TAKES 2 TABLETS DAILY. LASTDOSE ON
     Route: 048
     Dates: start: 2024
  5. METHOTREXATE [Concomitant]
     Active Substance: METHOTREXATE
  6. HYDROXYCHLOROQUINE [Concomitant]
     Active Substance: HYDROXYCHLOROQUINE
  7. METOPROLOL [Concomitant]
     Active Substance: METOPROLOL
  8. NIFEDIPINE [Concomitant]
     Active Substance: NIFEDIPINE

REACTIONS (5)
  - Atrial fibrillation [Not Recovered/Not Resolved]
  - Cardiac flutter [Not Recovered/Not Resolved]
  - Heart rate decreased [Recovered/Resolved]
  - Off label use [Unknown]
  - Mouth ulceration [Not Recovered/Not Resolved]

NARRATIVE: CASE EVENT DATE: 20220101
